FAERS Safety Report 8046093-4 (Version None)
Quarter: 2012Q1

REPORT INFORMATION
  Report Type: 
  Country: None (occurrence: None)
  Receive Date: 20120113
  Receipt Date: 20120109
  Transmission Date: 20120608
  Serious: No
  Sender: FDA-Public Use
  Company Number: US-PFIZER INC-2012007414

PATIENT
  Sex: Female
  Weight: 65.76 kg

DRUGS (8)
  1. LISINOPRIL [Suspect]
     Indication: BLOOD PRESSURE ABNORMAL
     Dosage: 2.5 MG, DAILY
     Dates: start: 20120101
  2. PRISTIQ [Concomitant]
     Indication: ANXIETY
     Dosage: UNK
  3. FEOFOL [Concomitant]
     Indication: BLOOD TEST ABNORMAL
     Dosage: UNK
  4. NORVASC [Concomitant]
     Indication: BLOOD PRESSURE ABNORMAL
     Dosage: UNK
  5. XANAX [Concomitant]
     Indication: ANXIETY
     Dosage: UNK
  6. VYTORIN [Concomitant]
     Indication: BLOOD CHOLESTEROL ABNORMAL
     Dosage: UNK
  7. PROTONIX [Suspect]
     Indication: GASTROOESOPHAGEAL REFLUX DISEASE
     Dosage: 40 MG, DAILY
     Dates: start: 20120101
  8. VITAMIN B-12 [Concomitant]
     Indication: THERAPEUTIC PROCEDURE
     Dosage: UNK

REACTIONS (3)
  - NAUSEA [None]
  - ASTHENIA [None]
  - DIZZINESS [None]
